FAERS Safety Report 6338427-3 (Version None)
Quarter: 2009Q3

REPORT INFORMATION
  Report Type: 
  Country: None (occurrence: None)
  Receive Date: 20090902
  Receipt Date: 20090828
  Transmission Date: 20100115
  Serious: Yes (Disabling)
  Sender: FDA-Public Use
  Company Number: IT-MERCK-0908ITA00027

PATIENT
  Age: 61 Year
  Sex: Female

DRUGS (10)
  1. ZOCOR [Suspect]
     Indication: HYPERCHOLESTEROLAEMIA
     Route: 048
     Dates: start: 20060401, end: 20090331
  2. DULOXETINE HYDROCHLORIDE [Concomitant]
     Route: 048
  3. CLOPIDOGREL BISULFATE [Concomitant]
     Route: 065
  4. NIMODIPINE [Concomitant]
     Route: 048
  5. ALPRAZOLAM [Concomitant]
     Route: 065
  6. DOXAZOSIN MESYLATE [Concomitant]
     Route: 065
  7. ESCITALOPRAM OXALATE [Concomitant]
     Route: 065
  8. ESCITALOPRAM OXALATE [Concomitant]
     Route: 065
  9. MAGNESIUM ASPARTATE AND POTASSIUM ASPARTATE [Concomitant]
     Route: 065
  10. GINSENG (UNSPECIFIED) [Concomitant]
     Route: 065

REACTIONS (2)
  - AMYOTROPHIC LATERAL SCLEROSIS [None]
  - DYSARTHRIA [None]
